FAERS Safety Report 4606123-6 (Version None)
Quarter: 2005Q2

REPORT INFORMATION
  Report Type: 
  Country: None (occurrence: None)
  Receive Date: 20050303
  Receipt Date: 20041231
  Transmission Date: 20051028
  Serious: Yes (Other)
  Sender: FDA-Public Use
  Company Number: 200510002BWH

PATIENT
  Age: 39 Year
  Sex: Male
  Weight: 104.3273 kg

DRUGS (1)
  1. LEVITRA [Suspect]
     Indication: ERECTILE DYSFUNCTION
     Dosage: 20 MG, ONCE, ORAL
     Route: 048
     Dates: start: 20041229

REACTIONS (2)
  - ABDOMINAL PAIN [None]
  - VOMITING [None]
